APPROVED DRUG PRODUCT: AQUATAG
Active Ingredient: BENZTHIAZIDE
Strength: 50MG
Dosage Form/Route: TABLET;ORAL
Application: N016001 | Product #002
Applicant: SOLVAY PHARMACEUTICALS
Approved: Approved Prior to Jan 1, 1982 | RLD: No | RS: No | Type: DISCN